FAERS Safety Report 4601557-8 (Version None)
Quarter: 2005Q1

REPORT INFORMATION
  Report Type: 
  Country: None (occurrence: None)
  Receive Date: 20050131
  Receipt Date: 20041122
  Transmission Date: 20050727
  Serious: Yes (Hospitalization)
  Sender: FDA-Public Use
  Company Number: 200416235US

PATIENT
  Age: 42 Year
  Sex: Female

DRUGS (5)
  1. KETEK [Suspect]
     Indication: BRONCHITIS
     Dosage: 800 MG QD
     Dates: start: 20040817, end: 20040817
  2. KETEK [Suspect]
     Indication: SINUSITIS
     Dosage: 800 MG QD
     Dates: start: 20040817, end: 20040817
  3. METOPROLOL SUCCINATE [Concomitant]
  4. CELEBREX [Concomitant]
  5. DECONGESTANT [Concomitant]

REACTIONS (1)
  - ANAPHYLACTIC REACTION [None]
